FAERS Safety Report 6256121-4 (Version None)
Quarter: 2009Q3

REPORT INFORMATION
  Report Type: 
  Country: None (occurrence: None)
  Receive Date: 20090706
  Receipt Date: 20090622
  Transmission Date: 20100115
  Serious: Yes (Hospitalization, Other)
  Sender: FDA-Public Use
  Company Number: PHHY2009FR26212

PATIENT
  Sex: Male
  Weight: 2910 kg

DRUGS (8)
  1. TEGRETOL-XR [Suspect]
     Dosage: MOTHER DOSE:400 MG BID
     Route: 064
  2. CLONAZEPAM [Suspect]
     Dosage: MOTHER'S DOSE:20 DROPS DAILY
     Route: 064
  3. SERESTA [Suspect]
     Dosage: MOTHER'S DOSE:50 MG BID
     Route: 064
  4. XANAX [Suspect]
     Dosage: MOTHER'S DOSE:0.25 MG QID
     Route: 064
  5. MYOLASTAN [Suspect]
     Dosage: MOTHER'S DOSE:EVERY DAY ON REQUEST
     Route: 064
  6. PAROXETINE HCL [Suspect]
     Dosage: MOTHER'S DOSE:30 MG DAILY
     Route: 064
  7. AERIUS [Suspect]
     Dosage: MOTHER'S DOSE: ON REQUEST
     Route: 064
  8. TOBACCO [Suspect]
     Dosage: MOTHER'S DOSE: 10 TO 20 CIGRATTES DAILY
     Route: 064

REACTIONS (13)
  - AGITATION [None]
  - ANTICONVULSANT DRUG LEVEL INCREASED [None]
  - BRADYCARDIA [None]
  - DRUG EXPOSURE DURING PREGNANCY [None]
  - DRUG WITHDRAWAL SYNDROME NEONATAL [None]
  - FEEDING DISORDER NEONATAL [None]
  - HYPOVENTILATION [None]
  - IRRITABILITY [None]
  - PALLOR [None]
  - SNEEZING [None]
  - SOMNOLENCE [None]
  - TREMOR [None]
  - WEIGHT INCREASED [None]
